FAERS Safety Report 20442389 (Version 2)
Quarter: 2022Q1

REPORT INFORMATION
  Report Type: Spontaneous
  Country: US (occurrence: US)
  Receive Date: 20220208
  Receipt Date: 20220208
  Transmission Date: 20220423
  Serious: No
  Sender: FDA-Public Use
  Company Number: US-ALLERGAN-2117459US

PATIENT
  Age: 71 Year
  Sex: Male

DRUGS (2)
  1. VIIBRYD [Suspect]
     Active Substance: VILAZODONE HYDROCHLORIDE
     Indication: Major depression
     Dosage: 40 MG AT 6:30 AM
  2. VIIBRYD [Suspect]
     Active Substance: VILAZODONE HYDROCHLORIDE
     Indication: Major depression
     Dosage: 20 MG AT 2:30 PM

REACTIONS (3)
  - Off label use [Unknown]
  - Therapeutic response decreased [Unknown]
  - Diarrhoea [Unknown]
